FAERS Safety Report 5127217-5 (Version None)
Quarter: 2006Q4

REPORT INFORMATION
  Report Type: 
  Country: None (occurrence: None)
  Receive Date: 20061010
  Receipt Date: 20060927
  Transmission Date: 20070319
  Serious: Yes (Hospitalization)
  Sender: FDA-Public Use
  Company Number: MEDI-0004968

PATIENT
  Age: 51 Year
  Sex: Male

DRUGS (5)
  1. ETHYOL [Suspect]
     Indication: RADIOTHERAPY
     Dosage: 500 MG, 5 IN 5 D, SUBCUTANEOUS
     Route: 058
     Dates: start: 20060718, end: 20060726
  2. ETHYOL [Suspect]
     Indication: RADIOTHERAPY
     Dosage: 500 MG, 5 IN 5 D, SUBCUTANEOUS
     Route: 058
     Dates: start: 20060731, end: 20060731
  3. RADIATION THERAPY [Concomitant]
  4. CISPLATIN [Concomitant]
  5. KYTRIL [Concomitant]

REACTIONS (10)
  - ASTHENIA [None]
  - DEHYDRATION [None]
  - DYSPHAGIA [None]
  - GASTROOESOPHAGEAL REFLUX DISEASE [None]
  - MUCOUS MEMBRANE DISORDER [None]
  - NAUSEA [None]
  - OESOPHAGEAL CANDIDIASIS [None]
  - ORAL CANDIDIASIS [None]
  - PAIN [None]
  - RADIATION OESOPHAGITIS [None]
